FAERS Safety Report 9272600 (Version 1)
Quarter: 2013Q2

REPORT INFORMATION
  Report Type: Spontaneous
  Country: US (occurrence: US)
  Receive Date: 20130506
  Receipt Date: 20130506
  Transmission Date: 20140414
  Serious: No
  Sender: FDA-Public Use
  Company Number: US-ASTRAZENECA-2013SE00647

PATIENT
  Sex: Female

DRUGS (3)
  1. PRILOSEC OTC [Suspect]
     Indication: DYSPEPSIA
     Route: 048
     Dates: start: 20121130, end: 20121224
  2. CARDIOVASCULAR SYSTEM DRUGS [Concomitant]
  3. ANTI-ASTHMATICS [Concomitant]

REACTIONS (1)
  - Dyspepsia [Recovered/Resolved]
